FAERS Safety Report 7982417-1 (Version None)
Quarter: 2011Q4

REPORT INFORMATION
  Report Type: 
  Country: None (occurrence: None)
  Receive Date: 20111215
  Receipt Date: 20111209
  Transmission Date: 20120403
  Serious: Yes (Death, Life-Threatening)
  Sender: FDA-Public Use
  Company Number: PHHO2011US020661

PATIENT
  Sex: Female

DRUGS (4)
  1. EXELON [Suspect]
     Indication: DEMENTIA ALZHEIMER'S TYPE
     Dosage: UNK
     Route: 048
     Dates: start: 20110414, end: 20111005
  2. ENABLEX [Concomitant]
     Indication: MICTURITION URGENCY
     Dosage: 15 MG, UNK
     Dates: start: 20000101
  3. EXELON [Suspect]
  4. DILTIAZEM HCL [Concomitant]
     Indication: HYPERTENSION
     Dosage: 120 MG, UNK
     Dates: start: 20060101

REACTIONS (1)
  - ACUTE PRERENAL FAILURE [None]
